FAERS Safety Report 9206763 (Version 2)
Quarter: 2013Q4

REPORT INFORMATION
  Report Type: Spontaneous
  Country: US (occurrence: None)
  Receive Date: 20120713
  Receipt Date: 20131226
  Transmission Date: 20140711
  Serious: Yes (Other)
  Sender: FDA-Public Use
  Company Number: PHEH2012US007473

PATIENT
  Age: 59 Year
  Sex: Female
  Weight: 77.1 kg

DRUGS (5)
  1. ILARIS [Suspect]
     Indication: FAMILIAL COLD AUTOINFLAMMATORY SYNDROME
     Route: 058
     Dates: start: 20120214
  2. CETIRIZINE (CETIRIZINE) [Concomitant]
  3. BUPROPION (BUPROPION) [Concomitant]
  4. FAMOTIDINE (FAMOTIDINE) [Concomitant]
  5. MULTIVITAMINS (ASCORBIC ACID, ERGOCALCIFERON, FOLIC ACIDE , NICOTINAMIDE, PANTHENOL, RETINOL, RIBOFLAVIN, THIAMINE HYDROCHLORIDE) [Concomitant]

REACTIONS (3)
  - Rash [None]
  - Immunodeficiency [None]
  - Drug effect decreased [None]
